FAERS Safety Report 6306324-5 (Version None)
Quarter: 2009Q3

REPORT INFORMATION
  Report Type: 
  Country: None (occurrence: None)
  Receive Date: 20090812
  Receipt Date: 20090806
  Transmission Date: 20100115
  Serious: Yes (Hospitalization)
  Sender: FDA-Public Use
  Company Number: JP-ASTRAZENECA-2009SE07201

PATIENT
  Age: 87 Year
  Sex: Female
  Weight: 32 kg

DRUGS (14)
  1. OMEPRAL [Suspect]
     Route: 042
     Dates: start: 20090728, end: 20090801
  2. PICILLIBACTA [Suspect]
     Route: 042
     Dates: start: 20090728, end: 20090801
  3. DEXTROSE [Concomitant]
     Route: 041
     Dates: start: 20090709, end: 20090728
  4. TWINPAL [Concomitant]
     Route: 041
     Dates: start: 20090718, end: 20090728
  5. INTRALIPID 10% [Concomitant]
     Route: 041
     Dates: start: 20090723, end: 20090728
  6. SOLDEM 1 [Concomitant]
     Route: 041
     Dates: start: 20090725, end: 20090728
  7. SOLDEM 2 [Concomitant]
     Route: 041
     Dates: start: 20090725, end: 20090728
  8. ISOTONIC SODIUM CHLORIDE SOLUTION KIT [Concomitant]
     Route: 041
     Dates: start: 20090728, end: 20090801
  9. SEISHOKU [Concomitant]
     Route: 042
     Dates: start: 20090728, end: 20090801
  10. SOLDEM 3A [Concomitant]
     Route: 041
     Dates: start: 20090729, end: 20090731
  11. SOLDEM 3A [Concomitant]
     Route: 041
     Dates: start: 20090729, end: 20090729
  12. C-PARA [Concomitant]
     Dosage: DOSE UNKNOWN
     Route: 041
     Dates: start: 20090725, end: 20090728
  13. C-PARA [Concomitant]
     Dosage: DOSE UNKNOWN
     Route: 041
     Dates: start: 20090729, end: 20090731
  14. ADONA [Concomitant]
     Route: 041
     Dates: start: 20090729, end: 20090729

REACTIONS (1)
  - GRANULOCYTE COUNT DECREASED [None]
